FAERS Safety Report 8868346 (Version 1)
Quarter: 2012Q4

REPORT INFORMATION
  Report Type: 
  Country: US (occurrence: US)
  Receive Date: 20121025
  Receipt Date: 20121025
  Transmission Date: 20130627
  Serious: No
  Sender: FDA-Public Use
  Company Number: US-AMGEN-USASP2012019605

PATIENT
  Age: 62 Year
  Sex: Female

DRUGS (11)
  1. ENBREL [Suspect]
     Indication: PRODUCT USED FOR UNKNOWN INDICATION
     Dosage: 50 mg, 2 times/wk
     Route: 058
  2. SYNTHROID [Concomitant]
     Dosage: 100 mug, UNK
  3. LOVASTATIN [Concomitant]
     Dosage: 10 mg, UNK
  4. HYDROCHLOROTHIAZIDE [Concomitant]
     Dosage: 50 mg, UNK
  5. CYCLOBENZAPRINE [Concomitant]
     Dosage: 10 mg, UNK
  6. ASPIRIN BUFFERED [Concomitant]
     Dosage: 325 mg, UNK
  7. MULTIVITAMIN                       /00097801/ [Concomitant]
  8. NIACIN [Concomitant]
     Dosage: 400 mg, UNK
  9. CALCIUM [Concomitant]
     Dosage: 500 UNK, UNK
  10. MAGNESIUM [Concomitant]
     Dosage: 400 mg, UNK
  11. VITAMIN C ACID [Concomitant]
     Dosage: 1000 mg, UNK

REACTIONS (2)
  - Injection site erythema [Not Recovered/Not Resolved]
  - Injection site swelling [Not Recovered/Not Resolved]
